FAERS Safety Report 13245250 (Version 3)
Quarter: 2017Q2

REPORT INFORMATION
  Report Type: Spontaneous
  Country: US (occurrence: US)
  Receive Date: 20170217
  Receipt Date: 20170417
  Transmission Date: 20170830
  Serious: No
  Sender: FDA-Public Use
  Company Number: US-JNJFOC-20170214991

PATIENT
  Sex: Male
  Weight: 102.06 kg

DRUGS (1)
  1. INTELENCE [Suspect]
     Active Substance: ETRAVIRINE
     Indication: PRODUCT USED FOR UNKNOWN INDICATION
     Dosage: 4 YEARS AGO
     Route: 048
     Dates: start: 2014

REACTIONS (4)
  - Product size issue [Unknown]
  - Foreign body [Not Recovered/Not Resolved]
  - Product physical issue [Unknown]
  - Dysgeusia [Not Recovered/Not Resolved]
